FAERS Safety Report 9786034 (Version 1)
Quarter: 2013Q4

REPORT INFORMATION
  Report Type: Spontaneous
  Country: US (occurrence: US)
  Receive Date: 20131227
  Receipt Date: 20131227
  Transmission Date: 20140711
  Serious: No
  Sender: FDA-Public Use
  Company Number: US-009507513-1312USA009054

PATIENT
  Sex: Male

DRUGS (4)
  1. CLARITIN-D-24 [Suspect]
     Indication: NASOPHARYNGITIS
     Dosage: UNK, UNKNOWN
     Route: 048
  2. CLARITIN-D-24 [Suspect]
     Indication: SNEEZING
  3. CLARITIN-D-24 [Suspect]
     Indication: EYE PRURITUS
  4. CLARITIN-D-24 [Suspect]
     Indication: RHINORRHOEA

REACTIONS (4)
  - Heart rate irregular [Unknown]
  - Dizziness [Unknown]
  - Insomnia [Unknown]
  - Dry mouth [Unknown]
